FAERS Safety Report 17050192 (Version 13)
Quarter: 2025Q1

REPORT INFORMATION
  Report Type: Report from Study
  Country: CA (occurrence: CA)
  Receive Date: 20191119
  Receipt Date: 20250212
  Transmission Date: 20250408
  Serious: Yes (Hospitalization, Other)
  Sender: JOHNSON AND JOHNSON
  Company Number: CA-JNJFOC-20191113107

PATIENT
  Age: 72 Year
  Sex: Male
  Weight: 89 kg

DRUGS (5)
  1. REMICADE [Suspect]
     Active Substance: INFLIXIMAB
     Indication: Colitis ulcerative
     Route: 041
  2. REMICADE [Suspect]
     Active Substance: INFLIXIMAB
     Dosage: UNIT DOSE ALSO REPORTED AS 1000 MILLIGRAM
     Route: 041
     Dates: start: 20100908
  3. REMICADE [Suspect]
     Active Substance: INFLIXIMAB
     Dosage: ON 29-OCT-2020, THE PATIENT RECEIVED 86TH INFUSION OF 1000 MG DOSE.
     Route: 041
  4. REMICADE [Suspect]
     Active Substance: INFLIXIMAB
     Route: 041
  5. REMICADE [Suspect]
     Active Substance: INFLIXIMAB
     Route: 041

REACTIONS (4)
  - Bladder cancer [Unknown]
  - Transurethral prostatectomy [Unknown]
  - Neoplasm malignant [Unknown]
  - Inflammation [Unknown]

NARRATIVE: CASE EVENT DATE: 20191001
